FAERS Safety Report 4629386-X (Version None)
Quarter: 2005Q2

REPORT INFORMATION
  Report Type: 
  Country: None (occurrence: None)
  Receive Date: 20050405
  Receipt Date: 20030718
  Transmission Date: 20051028
  Serious: No
  Sender: FDA-Public Use
  Company Number: 5593

PATIENT
  Age: 75 Year
  Sex: Male

DRUGS (2)
  1. MITOMYCIN [Suspect]
     Indication: BLADDER CANCER
     Dosage: 40 MG INVES
     Dates: start: 20030603, end: 20030624
  2. BENDROFLUAZIDE [Concomitant]

REACTIONS (2)
  - RASH GENERALISED [None]
  - RASH VESICULAR [None]
